FAERS Safety Report 8021326-9 (Version None)
Quarter: 2012Q1

REPORT INFORMATION
  Report Type: 
  Country: None (occurrence: None)
  Receive Date: 20120104
  Receipt Date: 20111228
  Transmission Date: 20120608
  Serious: Yes (Hospitalization)
  Sender: FDA-Public Use
  Company Number: US-SANOFI-AVENTIS-2011SA085486

PATIENT
  Age: 53 Year
  Sex: Male

DRUGS (3)
  1. SOLOSTAR [Suspect]
  2. ALL OTHER THERAPEUTIC PRODUCTS [Concomitant]
  3. LANTUS [Suspect]
     Dosage: DOSE:68 UNIT(S)
     Route: 058
     Dates: start: 20060101

REACTIONS (4)
  - ABDOMINAL NEOPLASM [None]
  - METASTASES TO CENTRAL NERVOUS SYSTEM [None]
  - ABDOMINAL PAIN [None]
  - HYPERGLYCAEMIA [None]
